FAERS Safety Report 16412260 (Version 1)
Quarter: 2019Q2

REPORT INFORMATION
  Report Type: Spontaneous
  Country: US (occurrence: US)
  Receive Date: 20190610
  Receipt Date: 20190610
  Transmission Date: 20190711
  Serious: Yes (Death, Hospitalization)
  Sender: FDA-Public Use
  Company Number: PHHY2019US131810

PATIENT
  Age: 20 Year
  Sex: Male

DRUGS (2)
  1. PREDNISONE. [Suspect]
     Active Substance: PREDNISONE
     Indication: PRODUCT USED FOR UNKNOWN INDICATION
     Route: 048
  2. VALGANCICLOVIR. [Concomitant]
     Active Substance: VALGANCICLOVIR
     Indication: PRODUCT USED FOR UNKNOWN INDICATION
     Route: 065

REACTIONS (8)
  - Cough [Fatal]
  - Diarrhoea [Fatal]
  - Weight decreased [Fatal]
  - Progressive multifocal leukoencephalopathy [Fatal]
  - Neurological decompensation [Fatal]
  - Pyrexia [Fatal]
  - Headache [Fatal]
  - JC virus infection [Fatal]
